FAERS Safety Report 5803893-6 (Version None)
Quarter: 2008Q3

REPORT INFORMATION
  Report Type: 
  Country: None (occurrence: None)
  Receive Date: 20080708
  Receipt Date: 20080628
  Transmission Date: 20090109
  Serious: Yes (Other)
  Sender: FDA-Public Use
  Company Number: DZ-PFIZER INC-2008046189

PATIENT
  Age: 55 Year
  Sex: Female

DRUGS (1)
  1. QUINAPRIL HCL AND HYDROCHLOROTHIAZIDE [Suspect]
     Indication: HYPERTENSION
     Dosage: TEXT:20MG/12.5MG-FREQ:DAILY
     Route: 048
     Dates: start: 20080217, end: 20080417

REACTIONS (2)
  - BLOOD URIC ACID INCREASED [None]
  - SWELLING [None]
